FAERS Safety Report 8284548-8 (Version None)
Quarter: 2012Q2

REPORT INFORMATION
  Report Type: 
  Country: None (occurrence: None)
  Receive Date: 20120413
  Receipt Date: 20110620
  Transmission Date: 20120825
  Serious: No
  Sender: FDA-Public Use
  Company Number: US-ASTRAZENECA-2011SE08297

PATIENT
  Age: 58 Year
  Sex: Female
  Weight: 61.7 kg

DRUGS (4)
  1. RANITIDINE [Concomitant]
  2. INNOPRAN [Concomitant]
  3. NEXIUM [Suspect]
     Route: 048
  4. PAXIL CR [Concomitant]

REACTIONS (4)
  - GASTRIC DISORDER [None]
  - ANXIETY DISORDER [None]
  - DIARRHOEA [None]
  - IRRITABLE BOWEL SYNDROME [None]
